FAERS Safety Report 7763776 (Version 1)
Quarter: 2020Q3

REPORT INFORMATION
  Report Type: Spontaneous
  Country: DE (occurrence: DE)
  Receive Date: 20110118
  Receipt Date: 20110118
  Transmission Date: 20201104
  Serious: Yes (Other)
  Sender: FDA-Public Use
  Company Number: DE-ROCHE-752980

PATIENT
  Age: 67 Year
  Sex: Female

DRUGS (2)
  1. IBANDRONIC ACID. [Suspect]
     Active Substance: IBANDRONIC ACID
     Dosage: DRUG NAME REPORTED AS: IBANDRONATE
     Route: 042
  2. ZOLEDRONATE [Suspect]
     Active Substance: ZOLEDRONIC ACID
     Dosage: DOSE: 4
     Route: 042

REACTIONS (1)
  - Osteonecrosis of jaw [Recovered/Resolved]
